FAERS Safety Report 7505287-4 (Version None)
Quarter: 2011Q2

REPORT INFORMATION
  Report Type: 
  Country: None (occurrence: None)
  Receive Date: 20110526
  Receipt Date: 20110517
  Transmission Date: 20111010
  Serious: Yes (Hospitalization)
  Sender: FDA-Public Use
  Company Number: BG-US-EMD SERONO, INC.-7024502

PATIENT
  Sex: Female

DRUGS (1)
  1. REBIF [Suspect]
     Indication: MULTIPLE SCLEROSIS
     Dates: end: 20101007

REACTIONS (3)
  - ABORTION MISSED [None]
  - PREGNANCY [None]
  - DRUG EXPOSURE DURING PREGNANCY [None]
